FAERS Safety Report 6311168-4 (Version None)
Quarter: 2009Q3

REPORT INFORMATION
  Report Type: 
  Country: None (occurrence: None)
  Receive Date: 20090817
  Receipt Date: 20090810
  Transmission Date: 20100115
  Serious: Yes (Other)
  Sender: FDA-Public Use
  Company Number: GB-ROCHE-649702

PATIENT
  Age: 23 Year

DRUGS (3)
  1. TAMIFLU [Suspect]
     Indication: DRUG USE FOR UNKNOWN INDICATION
     Route: 065
     Dates: start: 20090712, end: 20090714
  2. CERAZETTE [Concomitant]
  3. AMOXICILLIN [Concomitant]
     Dosage: DRUG NAME REPOORTED AS CO-AMOXICILLIN

REACTIONS (2)
  - SWELLING FACE [None]
  - URTICARIA [None]
